FAERS Safety Report 8145621-8 (Version None)
Quarter: 2012Q1

REPORT INFORMATION
  Report Type: 
  Country: None (occurrence: None)
  Receive Date: 20120217
  Receipt Date: 20120206
  Transmission Date: 20120608
  Serious: Yes (Hospitalization)
  Sender: FDA-Public Use
  Company Number: US-MYLANLABS-2011S1000185

PATIENT
  Age: 11 Year
  Sex: Male

DRUGS (45)
  1. MORPHINE HYDROCHLORIDE [Suspect]
     Route: 041
     Dates: start: 20100621, end: 20100709
  2. NITRAZEPAM [Suspect]
     Route: 041
     Dates: start: 20100617, end: 20100709
  3. FENTANYL [Suspect]
     Route: 041
     Dates: start: 20100621, end: 20100708
  4. LIDOCAINE [Suspect]
     Route: 041
     Dates: start: 20100621, end: 20100709
  5. LANSOPRAZOLE [Suspect]
     Route: 048
     Dates: start: 20100628, end: 20100728
  6. RISPERIDONE [Suspect]
     Route: 048
     Dates: start: 20100702, end: 20100714
  7. PIPERACILLIN SODIUM [Suspect]
     Route: 041
     Dates: start: 20100715, end: 20100716
  8. ROCURONIUM BROMIDE [Suspect]
     Route: 041
     Dates: start: 20100617, end: 20100706
  9. DEXPANTHENOL [Suspect]
     Route: 041
     Dates: start: 20100604, end: 20100705
  10. OFLOXACIN [Suspect]
     Route: 047
     Dates: start: 20100728, end: 20100729
  11. FAMOTIDINE [Suspect]
     Route: 041
     Dates: start: 20100617, end: 20100626
  12. STREPTOCOCCUS FAECALIS [Suspect]
     Route: 048
     Dates: start: 20100711, end: 20100718
  13. DEXAMETHASONE [Suspect]
     Route: 042
     Dates: start: 20100617, end: 20100622
  14. CALCIUM GLUCONATE [Suspect]
     Route: 041
     Dates: start: 20100621, end: 20100621
  15. GLYCEROL 2.6% [Suspect]
     Indication: CONSTIPATION
     Route: 054
     Dates: start: 20100621
  16. DIAZEPAM [Suspect]
     Route: 048
     Dates: start: 20100702, end: 20100722
  17. MIDAZOLAM [Suspect]
     Route: 041
     Dates: start: 20100621, end: 20100621
  18. SPIRONOLACTONE [Suspect]
     Route: 048
     Dates: start: 20100626, end: 20100706
  19. DEXMEDETOMIDINE HYDROCHLORIDE [Suspect]
     Route: 041
     Dates: start: 20100704, end: 20100705
  20. ULTIVA [Suspect]
     Route: 042
     Dates: start: 20100621, end: 20100708
  21. ACETAMINOPHEN [Suspect]
     Route: 054
     Dates: start: 20100630, end: 20100716
  22. FAMOTIDINE [Suspect]
     Route: 048
     Dates: start: 20100626, end: 20100715
  23. CEFAZOLIN [Suspect]
     Route: 041
     Dates: start: 20100622, end: 20100624
  24. ACETAMINOPHEN [Suspect]
     Indication: PYREXIA
     Route: 048
     Dates: start: 20100627, end: 20100716
  25. CLINDAMYCIN PHOSPHATE [Suspect]
     Route: 042
     Dates: start: 20100708, end: 20100710
  26. FUROSEMIDE [Suspect]
     Route: 048
     Dates: start: 20100626, end: 20100706
  27. TRICLOFOS SODIUM [Suspect]
     Route: 048
     Dates: start: 20100628, end: 20100705
  28. OMEPRAZOLE [Suspect]
     Route: 041
     Dates: start: 20100716, end: 20100721
  29. HEPARIN SODIUM [Suspect]
     Route: 041
     Dates: start: 20100617
  30. GLYCEROL 2.6% [Suspect]
     Route: 041
     Dates: start: 20100617, end: 20100618
  31. EPINEPHRINE [Suspect]
     Route: 041
     Dates: start: 20100621, end: 20100621
  32. HYDROXYZINE HCL [Suspect]
     Route: 041
     Dates: start: 20100709, end: 20100709
  33. HYALURONATE SODIUM [Suspect]
     Route: 047
     Dates: start: 20100723, end: 20100821
  34. AMPICILLIN [Suspect]
     Route: 041
     Dates: start: 20100715, end: 20100716
  35. SODIUM PICOSULFATE [Suspect]
     Route: 048
     Dates: start: 20100620, end: 20100620
  36. PHENOBARBITAL TAB [Suspect]
     Route: 048
     Dates: start: 20100622, end: 20100709
  37. CEFTRIAXONE [Suspect]
     Indication: INFECTION
     Route: 041
     Dates: start: 20100630, end: 20100707
  38. NICARDIPINE HYDROCHLORIDE [Suspect]
     Route: 041
     Dates: start: 20100622, end: 20100624
  39. ETIZOLAM [Suspect]
     Dosage: UNIT CONT:1
     Route: 048
     Dates: start: 20100701, end: 20100701
  40. DIAZEPAM [Suspect]
     Route: 048
     Dates: start: 20100622, end: 20100701
  41. BIOFERMIN T [Suspect]
     Route: 048
     Dates: start: 20100711, end: 20100718
  42. LACTOBACILLUS CASEI [Suspect]
     Route: 048
     Dates: start: 20100702, end: 20100709
  43. HEPARIN SODIUM [Suspect]
     Route: 041
     Dates: start: 20100808, end: 20100812
  44. ATROPINE SULFATE [Suspect]
     Route: 041
     Dates: start: 20100617, end: 20100622
  45. FLURBIPROFEN [Suspect]
     Route: 041
     Dates: start: 20100709, end: 20100709

REACTIONS (1)
  - DRUG RASH WITH EOSINOPHILIA AND SYSTEMIC SYMPTOMS [None]
